FAERS Safety Report 9204756 (Version 2)
Quarter: 2013Q3

REPORT INFORMATION
  Report Type: Spontaneous
  Country: BR (occurrence: BR)
  Receive Date: 20130402
  Receipt Date: 20130912
  Transmission Date: 20140515
  Serious: Yes (Other)
  Sender: FDA-Public Use
  Company Number: BR-GLAXOSMITHKLINE-A1006765A

PATIENT
  Age: 72 Year
  Sex: Male
  Weight: 77 kg

DRUGS (16)
  1. COMBODART [Suspect]
     Indication: BENIGN PROSTATIC HYPERPLASIA
     Dosage: 1CAP PER DAY
     Route: 048
     Dates: start: 20121207
  2. AVODART [Suspect]
     Indication: BENIGN PROSTATIC HYPERPLASIA
     Route: 048
  3. GLIMEPIRID [Concomitant]
     Indication: DIABETES MELLITUS
     Dosage: 1TAB IN THE MORNING
     Dates: start: 200904
  4. GALVUS [Concomitant]
     Dosage: 50MG TWICE PER DAY
     Dates: start: 200904
  5. ANCORON [Concomitant]
     Dosage: 100MG TWICE PER DAY
     Dates: start: 200904
  6. CARVEDILOL [Concomitant]
     Dosage: 12.5MG TWICE PER DAY
     Dates: start: 200904
  7. METFORMIN [Concomitant]
     Dosage: 850MG TWICE PER DAY
     Dates: start: 200904
  8. LIPITOR [Concomitant]
     Dosage: 20MG PER DAY
     Dates: start: 200904
  9. AAS [Concomitant]
     Dosage: 100MG PER DAY
     Dates: start: 200904
  10. CLOPIDOGREL [Concomitant]
     Dosage: 75MG PER DAY
     Dates: start: 201208
  11. MACRODANTIN [Concomitant]
     Dosage: 100MG PER DAY
     Dates: start: 201208
  12. LEVOFLOXACIN [Concomitant]
     Dosage: 500MG PER DAY
     Dates: start: 201208
  13. AMBROXOL [Concomitant]
     Dates: start: 200904
  14. PULMICORT [Concomitant]
     Dates: start: 200904
  15. SALINE SOLUTION [Concomitant]
     Dates: start: 200904
  16. NORIPURUM (IRON HYDROXIDE + FOLIC ACID) [Concomitant]
     Indication: ANAEMIA

REACTIONS (7)
  - Scrotal swelling [Recovered/Resolved]
  - Scrotal disorder [Recovered/Resolved]
  - Scrotal pain [Recovered/Resolved]
  - Hair colour changes [Recovered/Resolved]
  - Skin discolouration [Recovering/Resolving]
  - Urinary tract infection [Recovered/Resolved]
  - Influenza [Recovered/Resolved]
